FAERS Safety Report 14556860 (Version 1)
Quarter: 2018Q1

REPORT INFORMATION
  Report Type: Spontaneous
  Country: US (occurrence: US)
  Receive Date: 20180221
  Receipt Date: 20180221
  Transmission Date: 20180509
  Serious: No
  Sender: FDA-Public Use
  Company Number: US-009507513-1802USA002472

PATIENT
  Age: 16 Year
  Sex: Female

DRUGS (1)
  1. NEXPLANON [Suspect]
     Active Substance: ETONOGESTREL
     Indication: MENOMETRORRHAGIA
     Dosage: 68 MG, ONE TIME
     Route: 059
     Dates: start: 20170811, end: 20180108

REACTIONS (4)
  - Headache [Unknown]
  - Vaginal haemorrhage [Unknown]
  - Product use in unapproved indication [Unknown]
  - Dizziness [Unknown]

NARRATIVE: CASE EVENT DATE: 20170811
